FAERS Safety Report 6525787-3 (Version None)
Quarter: 2010Q1

REPORT INFORMATION
  Report Type: 
  Country: None (occurrence: None)
  Receive Date: 20100104
  Receipt Date: 20091229
  Transmission Date: 20100710
  Serious: Yes (Hospitalization)
  Sender: FDA-Public Use
  Company Number: A0834492A

PATIENT
  Age: 68 Year
  Sex: Female

DRUGS (3)
  1. TYKERB [Suspect]
     Indication: DRUG USE FOR UNKNOWN INDICATION
     Dosage: 1250MG PER DAY
     Route: 048
     Dates: start: 20091129
  2. XELODA [Suspect]
  3. HYDRATION [Concomitant]

REACTIONS (9)
  - ABDOMINAL PAIN UPPER [None]
  - AMMONIA INCREASED [None]
  - BLOOD POTASSIUM DECREASED [None]
  - CHEILITIS [None]
  - DEPRESSED LEVEL OF CONSCIOUSNESS [None]
  - DIARRHOEA [None]
  - HOT FLUSH [None]
  - LOSS OF CONSCIOUSNESS [None]
  - STOMATITIS [None]
